FAERS Safety Report 24424582 (Version 1)
Quarter: 2024Q4

REPORT INFORMATION
  Report Type: Spontaneous
  Country: CN (occurrence: CN)
  Receive Date: 20241010
  Receipt Date: 20241010
  Transmission Date: 20250114
  Serious: Yes (Hospitalization)
  Sender: PAREXEL
  Company Number: CN-SHANGHAI JUNSHI BIOSCIENCES CO., LTD.-CN2024011523

PATIENT

DRUGS (6)
  1. TORIPALIMAB [Suspect]
     Active Substance: TORIPALIMAB
     Indication: Lung adenocarcinoma stage IV
     Dosage: 240 MG
     Route: 041
     Dates: start: 20240722, end: 20240722
  2. TORIPALIMAB [Suspect]
     Active Substance: TORIPALIMAB
     Indication: Bone cancer metastatic
     Dosage: 240 MG
     Route: 041
     Dates: start: 20240823, end: 20240823
  3. ZOLEDRONIC ACID [Suspect]
     Active Substance: ZOLEDRONIC ACID
     Indication: Lung adenocarcinoma stage IV
     Dosage: 4 MG
     Route: 041
     Dates: start: 20240827, end: 20240827
  4. ZOLEDRONIC ACID [Suspect]
     Active Substance: ZOLEDRONIC ACID
     Indication: Bone cancer metastatic
  5. BEVACIZUMAB [Suspect]
     Active Substance: BEVACIZUMAB
     Indication: Lung adenocarcinoma stage IV
     Dosage: 400 MG
     Route: 041
     Dates: start: 20240722, end: 20240722
  6. BEVACIZUMAB [Suspect]
     Active Substance: BEVACIZUMAB
     Indication: Bone cancer metastatic
     Dosage: 400 MG
     Route: 041
     Dates: start: 20240824, end: 20240824

REACTIONS (1)
  - Myelosuppression [Recovering/Resolving]

NARRATIVE: CASE EVENT DATE: 20240821
